FAERS Safety Report 7954812-8 (Version None)
Quarter: 2011Q4

REPORT INFORMATION
  Report Type: 
  Country: None (occurrence: None)
  Receive Date: 20111202
  Receipt Date: 20111117
  Transmission Date: 20120403
  Serious: Yes (Death)
  Sender: FDA-Public Use
  Company Number: US-ROCHE-1012853

PATIENT
  Age: 72 Year
  Sex: Male
  Weight: 120.1 kg

DRUGS (23)
  1. ALPRAZOLAM [Concomitant]
     Dates: start: 20110624, end: 20111111
  2. LEVOTHYROXINE SODIUM [Concomitant]
     Dates: end: 20111111
  3. TEMAZEPAM [Concomitant]
     Dates: end: 20111111
  4. ASPIRIN [Concomitant]
     Dates: end: 20111111
  5. METOLAZONE [Concomitant]
     Dates: end: 20111111
  6. NYSTATIN [Concomitant]
     Dates: end: 20111111
  7. SIMVASTATIN [Concomitant]
  8. LOVENOX [Concomitant]
     Dates: start: 20110719, end: 20111111
  9. HYDROXYZINE [Concomitant]
     Dates: start: 20110331, end: 20111111
  10. ISOSORBIDE MONONITRATE [Concomitant]
     Dates: end: 20111111
  11. MULTI-VITAMIN [Concomitant]
     Dates: end: 20111111
  12. PIOGLITAZONE [Concomitant]
     Dates: end: 20111111
  13. KLONOPIN [Concomitant]
     Dates: start: 20110701, end: 20111111
  14. TARCEVA [Suspect]
     Indication: HEPATIC NEOPLASM MALIGNANT
     Dates: start: 20110624, end: 20111013
  15. LOTRISONE [Concomitant]
     Dates: start: 20110708, end: 20111111
  16. AVASTIN [Suspect]
     Indication: HEPATIC NEOPLASM MALIGNANT
     Dates: start: 20110624, end: 20111013
  17. SORAFENIB [Suspect]
     Indication: HEPATIC NEOPLASM MALIGNANT
     Route: 048
     Dates: start: 20111029, end: 20111110
  18. CORTISONE CREAM [Concomitant]
     Dates: start: 20110707, end: 20111104
  19. FERROUS SULFATE TAB [Concomitant]
     Dates: start: 20110211, end: 20111111
  20. FAMOTIDINE [Concomitant]
     Dates: start: 20110422, end: 20111111
  21. FUROSEMIDE [Concomitant]
     Dates: start: 20110407, end: 20111111
  22. METOPROLOL TARTRATE [Concomitant]
     Dates: end: 20111111
  23. DOXYCYCLINE [Concomitant]
     Dates: start: 20110707, end: 20111104

REACTIONS (1)
  - DEATH [None]
